FAERS Safety Report 6297764-1 (Version None)
Quarter: 2009Q3

REPORT INFORMATION
  Report Type: 
  Country: None (occurrence: None)
  Receive Date: 20090804
  Receipt Date: 20090804
  Transmission Date: 20100115
  Serious: Yes (Life-Threatening, Hospitalization)
  Sender: FDA-Public Use
  Company Number: None

PATIENT
  Age: 85 Year
  Sex: Female
  Weight: 67 kg

DRUGS (4)
  1. LOVENOX [Suspect]
     Indication: ATRIAL FIBRILLATION
     Dosage: 60 MG BID SUBCUTANEOUSLY (057)
     Route: 058
     Dates: start: 20090628, end: 20090629
  2. LOVENOX [Suspect]
     Indication: THROMBOSIS PROPHYLAXIS
     Dosage: 60 MG BID SUBCUTANEOUSLY (057)
     Route: 058
     Dates: start: 20090628, end: 20090629
  3. LOVENOX [Suspect]
     Indication: ATRIAL FIBRILLATION
     Dosage: 70 MG DAILY SUBCUTANEOUSLY (057)
     Route: 058
     Dates: start: 20090701
  4. LOVENOX [Suspect]
     Indication: THROMBOSIS PROPHYLAXIS
     Dosage: 70 MG DAILY SUBCUTANEOUSLY (057)
     Route: 058
     Dates: start: 20090701

REACTIONS (5)
  - DYSKINESIA [None]
  - MUSCLE TWITCHING [None]
  - MUSCULAR WEAKNESS [None]
  - PARAESTHESIA [None]
  - SUBDURAL HAEMATOMA [None]
